FAERS Safety Report 7700785-2 (Version None)
Quarter: 2011Q3

REPORT INFORMATION
  Report Type: 
  Country: None (occurrence: None)
  Receive Date: 20110822
  Receipt Date: 20110816
  Transmission Date: 20111222
  Serious: Yes (Death, Hospitalization)
  Sender: FDA-Public Use
  Company Number: DE-ROCHE-777178

PATIENT

DRUGS (9)
  1. LEVOTHYROXINE SODIUM [Concomitant]
     Dates: start: 20110414
  2. OXYCODONE HCL [Concomitant]
     Dates: start: 20110414
  3. CALCIUM CARBONATE [Concomitant]
     Dates: start: 20110414
  4. AMITRIPTYLINE HCL [Concomitant]
     Dates: start: 20110414
  5. TRASTUZUMAB [Suspect]
     Indication: BREAST CANCER METASTATIC
     Dosage: LOADING DOSE
     Route: 042
     Dates: start: 20110414
  6. PANTOPRAZOLE [Concomitant]
  7. CAPECITABINE [Suspect]
     Indication: BREAST CANCER METASTATIC
     Dosage: TAKEN DAYS 1-14, FOLLOWED BY 7 DAY REST PERIOD. DATE OF LAST DOSE PRIOR TO SAE: 04 MAY2 011
     Route: 048
     Dates: start: 20110414, end: 20110510
  8. TRASTUZUMAB [Suspect]
     Dosage: MAINTENANCE DOSE (6 MG/KG).
     Route: 042
     Dates: start: 20110504
  9. BISOPROLOL FUMARATE [Concomitant]
     Dates: start: 20110414

REACTIONS (2)
  - PNEUMONIA [None]
  - DIARRHOEA [None]
